FAERS Safety Report 10067646 (Version 1)
Quarter: 2014Q2

REPORT INFORMATION
  Report Type: Spontaneous
  Country: FR (occurrence: FR)
  Receive Date: 20140409
  Receipt Date: 20140409
  Transmission Date: 20141212
  Serious: Yes (Hospitalization, Other)
  Sender: FDA-Public Use
  Company Number: FR-BAYER-2014-050597

PATIENT
  Age: 32 Year
  Sex: Female

DRUGS (1)
  1. MIRENA [Suspect]
     Dosage: 20 ?G/D, CONT
     Route: 015
     Dates: start: 20120705

REACTIONS (7)
  - Procedural haemorrhage [None]
  - Embedded device [None]
  - Post procedural infection [Recovered/Resolved]
  - Postoperative abscess [Recovered/Resolved]
  - Menorrhagia [None]
  - Device breakage [None]
  - Device difficult to use [None]
